FAERS Safety Report 7723902 (Version 6)
Quarter: 2013Q3

REPORT INFORMATION
  Report Type: Report from Study
  Country: US (occurrence: US)
  Receive Date: 20101221
  Receipt Date: 20130712
  Transmission Date: 20140515
  Serious: Yes (Hospitalization)
  Sender: FDA-Public Use
  Company Number: US-BRISTOL-MYERS SQUIBB COMPANY-15433378

PATIENT
  Age: 60 Year
  Sex: Female

DRUGS (4)
  1. SAXAGLIPTIN [Suspect]
     Indication: TYPE 2 DIABETES MELLITUS
     Dosage: DRUG INTERRUPTED ON 01DEC2010. RESUMED ON 01JAN2011.
     Dates: start: 20101025
  2. METFORMIN HCL [Suspect]
     Indication: DIABETES MELLITUS
  3. LANTUS [Suspect]
     Indication: DIABETES MELLITUS
  4. GLIMEPIRIDE [Suspect]
     Indication: DIABETES MELLITUS

REACTIONS (1)
  - Pancreatitis [Recovered/Resolved]
